FAERS Safety Report 7067336-X (Version None)
Quarter: 2010Q4

REPORT INFORMATION
  Report Type: 
  Country: None (occurrence: None)
  Receive Date: 20101022
  Receipt Date: 20101022
  Transmission Date: 20110411
  Serious: No
  Sender: FDA-Public Use
  Company Number: None

PATIENT
  Sex: Female
  Weight: 17.5 kg

DRUGS (1)
  1. CAMPATH [Suspect]
     Indication: HYPOGAMMAGLOBULINAEMIA
     Dates: start: 20101006, end: 20101009

REACTIONS (9)
  - ANAPHYLACTIC REACTION [None]
  - BODY TEMPERATURE INCREASED [None]
  - CHILLS [None]
  - HYPERVENTILATION [None]
  - INFUSION RELATED REACTION [None]
  - OXYGEN SATURATION DECREASED [None]
  - TREMOR [None]
  - URTICARIA [None]
  - WHEEZING [None]
